FAERS Safety Report 13616921 (Version 1)
Quarter: 2017Q2

REPORT INFORMATION
  Report Type: Spontaneous
  Country: US (occurrence: US)
  Receive Date: 20170606
  Receipt Date: 20170606
  Transmission Date: 20170830
  Serious: No
  Sender: FDA-Public Use
  Company Number: US-SA-2016SA130583

PATIENT
  Age: 83 Year
  Sex: Female

DRUGS (8)
  1. NOVOLOG [Concomitant]
     Active Substance: INSULIN ASPART
  2. SOLOSTAR [Suspect]
     Active Substance: DEVICE
     Indication: TYPE 2 DIABETES MELLITUS
     Dates: start: 201602
  3. LANTUS SOLOSTAR [Suspect]
     Active Substance: INSULIN GLARGINE
     Indication: TYPE 2 DIABETES MELLITUS
     Dosage: DOSE:13 UNIT(S)
     Route: 065
     Dates: start: 201608
  4. LEVEMIR [Concomitant]
     Active Substance: INSULIN DETEMIR
  5. LANTUS SOLOSTAR [Suspect]
     Active Substance: INSULIN GLARGINE
     Indication: TYPE 2 DIABETES MELLITUS
     Dosage: DOSE:13 UNIT(S)
     Route: 065
     Dates: start: 201608
  6. LANTUS SOLOSTAR [Suspect]
     Active Substance: INSULIN GLARGINE
     Indication: TYPE 2 DIABETES MELLITUS
     Dosage: DOSE:10 UNIT(S)
     Route: 065
     Dates: start: 201602
  7. SOLOSTAR [Suspect]
     Active Substance: DEVICE
     Indication: TYPE 2 DIABETES MELLITUS
     Dates: start: 201602
  8. LANTUS SOLOSTAR [Suspect]
     Active Substance: INSULIN GLARGINE
     Indication: TYPE 2 DIABETES MELLITUS
     Dosage: DOSE:10 UNIT(S)
     Route: 065
     Dates: start: 201602

REACTIONS (13)
  - Limb injury [Unknown]
  - Pain [Unknown]
  - Intentional product use issue [Unknown]
  - Headache [Unknown]
  - Injection site swelling [Unknown]
  - Gait disturbance [Unknown]
  - Fall [Unknown]
  - Device use issue [Unknown]
  - Sciatica [Unknown]
  - Injection site erythema [Unknown]
  - Blood glucose increased [Unknown]
  - Injection site inflammation [Unknown]
  - Blood glucose increased [Unknown]

NARRATIVE: CASE EVENT DATE: 20160712
